FAERS Safety Report 20556635 (Version 1)
Quarter: 2022Q1

REPORT INFORMATION
  Report Type: Report from Study
  Country: US (occurrence: US)
  Receive Date: 20220307
  Receipt Date: 20220307
  Transmission Date: 20220423
  Serious: Yes (Hospitalization)
  Sender: FDA-Public Use
  Company Number: US-JNJFOC-20211103067

PATIENT
  Age: 58 Year
  Sex: Female
  Weight: 56.8 kg

DRUGS (6)
  1. MACITENTAN [Suspect]
     Active Substance: MACITENTAN
     Indication: Pulmonary arterial hypertension
     Route: 048
  2. MACITENTAN [Suspect]
     Active Substance: MACITENTAN
     Indication: Pulmonary hypertension
  3. SELEXIPAG [Suspect]
     Active Substance: SELEXIPAG
     Indication: Pulmonary arterial hypertension
     Route: 048
  4. REMODULIN [Suspect]
     Active Substance: TREPROSTINIL
     Route: 065
  5. TADALAFIL [Concomitant]
     Active Substance: TADALAFIL
  6. REMODULIN [Concomitant]
     Active Substance: TREPROSTINIL

REACTIONS (15)
  - Pulmonary arterial hypertension [Unknown]
  - Blood potassium decreased [Unknown]
  - Blood magnesium decreased [Unknown]
  - Cardiac failure [Unknown]
  - Wound infection [Unknown]
  - Pain [Unknown]
  - Hypotension [Unknown]
  - Headache [Unknown]
  - Nausea [Unknown]
  - Pain in extremity [Unknown]
  - Asthenia [Unknown]
  - COVID-19 [Unknown]
  - Pain in jaw [Unknown]
  - Myalgia [Unknown]
  - Malaise [Unknown]

NARRATIVE: CASE EVENT DATE: 20211112
